FAERS Safety Report 8007401-3 (Version None)
Quarter: 2011Q4

REPORT INFORMATION
  Report Type: 
  Country: None (occurrence: None)
  Receive Date: 20111227
  Receipt Date: 20111222
  Transmission Date: 20120403
  Serious: Yes (Other)
  Sender: FDA-Public Use
  Company Number: US-PFIZER INC-2011274101

PATIENT
  Sex: Male
  Weight: 103.9 kg

DRUGS (19)
  1. LIPITOR [Suspect]
     Indication: BLOOD CHOLESTEROL INCREASED
     Dosage: 10 MG, 1X/DAY AT NIGHT
     Route: 048
  2. ASPIRIN [Concomitant]
     Indication: CARDIOVASCULAR EVENT PROPHYLAXIS
     Dosage: 81 MG, 1X/DAY IN THE MORNING
  3. CLONAZEPAM [Concomitant]
     Indication: CONVULSION
  4. CETIRIZINE HYDROCHLORIDE [Concomitant]
     Indication: HYPERSENSITIVITY
     Dosage: 10 MG, 1X/DAY AT NIGHT
  5. MULTI-VITAMINS [Concomitant]
     Indication: MALABSORPTION
     Dosage: TWO TABLETS, 1X/DAY IN THE MORNING
     Route: 048
  6. GABAPENTIN [Concomitant]
     Indication: NEUROPATHY PERIPHERAL
     Dosage: 300 MG, 1X/DAY AT NIGHT
  7. LEVOTHYROXINE [Concomitant]
     Indication: HYPOTHYROIDISM
     Dosage: 175 UG, 1X/DAY IN THE MORNING
  8. LEVOTHYROXINE [Concomitant]
     Indication: EMPTY SELLA SYNDROME
  9. CLONAZEPAM [Concomitant]
     Indication: MUSCLE SPASMS
     Dosage: 0.5 MG, 1X/DAY AT NIGHT
  10. IRON [Concomitant]
     Indication: ANAEMIA
     Dosage: 65 MG, 1X/DAY AT NIGHT
  11. LOSARTAN [Concomitant]
     Indication: PROPHYLAXIS
     Dosage: UNK, DAILY
  12. GENOTROPIN [Concomitant]
     Indication: EMPTY SELLA SYNDROME
     Dosage: 5 MG, 1X/DAY, IN THE MORNING
     Route: 058
  13. VITAMIN D [Concomitant]
     Indication: MALABSORPTION
     Dosage: 1000 IU, 1X/DAY
  14. CETIRIZINE HYDROCHLORIDE [Concomitant]
     Indication: SKIN DISORDER
  15. JANUVIA [Concomitant]
     Indication: TYPE 2 DIABETES MELLITUS
     Dosage: 50 MG, 1X/DAY IN THE MORNING
  16. TESTOSTERONE [Concomitant]
     Indication: EMPTY SELLA SYNDROME
     Dosage: 200 MG, EVERY TWO WEEK
  17. LIPITOR [Suspect]
     Indication: ATHEROSCLEROSIS PROPHYLAXIS
  18. CALCIUM [Concomitant]
     Indication: MALABSORPTION
     Dosage: 1200 MG, DAILY
  19. OMEPRAZOLE [Concomitant]
     Indication: GASTROOESOPHAGEAL REFLUX DISEASE
     Dosage: 20 MG, 2X/DAY

REACTIONS (1)
  - LIMB INJURY [None]
